FAERS Safety Report 24326030 (Version 2)
Quarter: 2024Q3

REPORT INFORMATION
  Report Type: Spontaneous
  Country: TW (occurrence: TW)
  Receive Date: 20240917
  Receipt Date: 20240923
  Transmission Date: 20241016
  Serious: Yes (Other)
  Sender: AMGEN
  Company Number: TW-PFIZER INC-202400253560

PATIENT
  Sex: Female

DRUGS (2)
  1. ENBREL [Suspect]
     Active Substance: ETANERCEPT
     Indication: Product used for unknown indication
     Dosage: 25 MG
     Route: 048
  2. ENBREL [Suspect]
     Active Substance: ETANERCEPT
     Dosage: 50 MG
     Route: 048

REACTIONS (4)
  - Suicidal ideation [Unknown]
  - Multiple fractures [Not Recovered/Not Resolved]
  - Pulmonary embolism [Unknown]
  - Somatic symptom disorder [Unknown]

NARRATIVE: CASE EVENT DATE: 20230101
